FAERS Safety Report 4629965-X (Version None)
Quarter: 2005Q2

REPORT INFORMATION
  Report Type: 
  Country: None (occurrence: None)
  Receive Date: 20050408
  Receipt Date: 20050401
  Transmission Date: 20051028
  Serious: Yes (Death, Life-Threatening, Disabling, Other)
  Sender: FDA-Public Use
  Company Number: CA-MERCK-0504CAN00003

PATIENT
  Age: 75 Year
  Sex: Male
  Weight: 88 kg

DRUGS (21)
  1. FOSAMAX [Suspect]
     Indication: OSTEOPOROSIS
     Route: 048
     Dates: start: 20050315, end: 20050316
  2. VITAMIN D (UNSPECIFIED) [Concomitant]
     Indication: OSTEOPOROSIS
     Route: 065
     Dates: start: 20050315, end: 20050316
  3. ASPIRIN [Suspect]
     Indication: OSTEOARTHRITIS
     Route: 048
     Dates: end: 20050315
  4. ASPIRIN [Suspect]
     Route: 048
     Dates: start: 20000315
  5. ASPIRIN [Suspect]
     Indication: PROPHYLAXIS
     Route: 048
     Dates: end: 20050315
  6. ASPIRIN [Suspect]
     Route: 048
     Dates: start: 20000315
  7. IBUPROFEN [Suspect]
     Indication: OSTEOARTHRITIS
     Route: 048
     Dates: start: 19850301, end: 20050315
  8. IBUPROFEN [Suspect]
     Indication: NECK PAIN
     Route: 048
     Dates: start: 19850301, end: 20050315
  9. CALCIUM (UNSPECIFIED) [Concomitant]
     Indication: OSTEOPOROSIS
     Route: 065
     Dates: start: 20050315
  10. VITAMINS (UNSPECIFIED) [Concomitant]
     Route: 065
  11. BUDESONIDE AND FORMOTEROL FUMARATE [Concomitant]
     Indication: CHRONIC OBSTRUCTIVE PULMONARY DISEASE
     Route: 065
     Dates: start: 20030902
  12. ALBUTEROL SULFATE AND IPRATROPIUM BROMIDE [Concomitant]
     Indication: CHRONIC OBSTRUCTIVE PULMONARY DISEASE
     Route: 065
     Dates: start: 20040319
  13. GLUCOSAMINE [Concomitant]
     Indication: OSTEOARTHRITIS
     Route: 065
     Dates: start: 20020315
  14. ASCORBIC ACID [Concomitant]
     Indication: ROUTINE HEALTH MAINTENANCE
     Route: 065
     Dates: start: 19900315
  15. OMEGA-3 MARINE TRIGLYCERIDES [Concomitant]
     Indication: ROUTINE HEALTH MAINTENANCE
     Route: 065
     Dates: start: 20040315
  16. TESTOSTERONE UNDECANOATE [Concomitant]
     Indication: BLOOD TESTOSTERONE DECREASED
     Route: 065
     Dates: start: 20010119
  17. METFORMIN [Concomitant]
     Indication: DIABETES MELLITUS
     Route: 065
     Dates: start: 20020315
  18. DILTIAZEM HYDROCHLORIDE [Concomitant]
     Indication: HYPERTENSION
     Route: 065
     Dates: start: 20010315
  19. FOSINOPRIL SODIUM [Concomitant]
     Indication: HYPERTENSION
     Route: 065
     Dates: start: 20010315
  20. PRAVASTATIN SODIUM [Concomitant]
     Indication: HYPERLIPIDAEMIA
     Route: 065
     Dates: start: 20010315
  21. VALDECOXIB [Concomitant]
     Indication: NECK PAIN
     Route: 065
     Dates: start: 20010315

REACTIONS (1)
  - SUBARACHNOID HAEMORRHAGE [None]
